FAERS Safety Report 8129793-7 (Version None)
Quarter: 2011Q4

REPORT INFORMATION
  Report Type: 
  Country: None (occurrence: None)
  Receive Date: 20111227
  Receipt Date: 20110826
  Transmission Date: 20120403
  Serious: No
  Sender: FDA-Public Use
  Company Number: PHEH2011US00619

PATIENT
  Age: 47 Year
  Sex: Female

DRUGS (8)
  1. GILENYA [Suspect]
     Indication: MULTIPLE SCLEROSIS
     Dosage: 0.5 MG, QD, ORAL
     Route: 048
     Dates: start: 20110225
  2. WELLBUTRIN (BUPROPION HYDROCHLORIDE) ONGOING [Concomitant]
  3. CHANTIX (VARENICLINE TARTRATE) ONGOING [Concomitant]
  4. OXYCODONE (OXYCODONE) ONGOING [Concomitant]
  5. REGLAN (METOCLOPRAMIDE HYDROCHLORIDE) ONGOING [Concomitant]
  6. SKELAXIN (METAXALONE) ONGOING [Concomitant]
  7. PRILOSEC (OMEPRAZOLE) ONGOING [Concomitant]
  8. NEURONTIN (GABAPENTIN) ONGOING [Concomitant]

REACTIONS (2)
  - HEADACHE [None]
  - FATIGUE [None]
